FAERS Safety Report 9382466 (Version 2)
Quarter: 2014Q3

REPORT INFORMATION
  Report Type: Spontaneous
  Country: US (occurrence: US)
  Receive Date: 20130703
  Receipt Date: 20140723
  Transmission Date: 20150326
  Serious: Yes (Other)
  Sender: FDA-Public Use
  Company Number: US-BAYER-2013-081632

PATIENT
  Age: 21 Year
  Sex: Female
  Weight: 109.3 kg

DRUGS (4)
  1. YAZ [Suspect]
     Active Substance: DROSPIRENONE\ETHINYL ESTRADIOL
     Dosage: UNK
     Dates: start: 2002, end: 2007
  2. ALBUTEROL. [Concomitant]
     Active Substance: ALBUTEROL
     Indication: ASTHMA
  3. YASMIN [Suspect]
     Active Substance: DROSPIRENONE\ETHINYL ESTRADIOL
     Dosage: UNK
     Dates: start: 2002, end: 2007
  4. COLECALCIFEROL [Concomitant]
     Active Substance: CHOLECALCIFEROL
     Dosage: UNK
     Dates: start: 20030324

REACTIONS (5)
  - Cholecystitis chronic [None]
  - Gallbladder disorder [Recovered/Resolved]
  - Injury [None]
  - Thrombosis [None]
  - Pain [None]

NARRATIVE: CASE EVENT DATE: 2007
